FAERS Safety Report 9955907 (Version 2)
Quarter: 2014Q1

REPORT INFORMATION
  Report Type: Report from Study
  Country: US (occurrence: US)
  Receive Date: 20140304
  Receipt Date: 20140304
  Transmission Date: 20141002
  Serious: No
  Sender: FDA-Public Use
  Company Number: US-ABBVIE-13P-163-1060933-00

PATIENT
  Age: 35 Year
  Sex: Female

DRUGS (13)
  1. HUMIRA [Suspect]
     Indication: CROHN^S DISEASE
  2. ZOFRAN [Concomitant]
     Indication: NAUSEA
  3. ZOFRAN [Concomitant]
     Indication: NAUSEA
  4. PHENERGAN [Concomitant]
     Indication: CROHN^S DISEASE
  5. PHENERGAN [Concomitant]
     Indication: CROHN^S DISEASE
  6. METHYLDOPA [Concomitant]
     Indication: HYPERTENSION
  7. PREVACID [Concomitant]
     Indication: GASTROOESOPHAGEAL REFLUX DISEASE
  8. CYMBALTA [Concomitant]
     Indication: ANXIETY
  9. CYMBALTA [Concomitant]
     Indication: DEPRESSION
     Dates: start: 20130424
  10. PRENATAL VITAMINS [Concomitant]
     Indication: VITAMIN SUPPLEMENTATION
  11. XANAX [Concomitant]
     Indication: ANXIETY
  12. LORTAB [Concomitant]
     Indication: DYSMENORRHOEA
     Dosage: 5/325
  13. ULTRACET [Concomitant]
     Indication: BACK PAIN

REACTIONS (22)
  - Drug dose omission [Unknown]
  - Influenza like illness [Unknown]
  - Throat irritation [Unknown]
  - Nasopharyngitis [Unknown]
  - Menstruation irregular [Not Recovered/Not Resolved]
  - Menorrhagia [Not Recovered/Not Resolved]
  - Oligomenorrhoea [Not Recovered/Not Resolved]
  - Pain [Not Recovered/Not Resolved]
  - Gastric disorder [Not Recovered/Not Resolved]
  - Haemorrhoids [Not Recovered/Not Resolved]
  - Mucous stools [Not Recovered/Not Resolved]
  - Stomatitis [Not Recovered/Not Resolved]
  - Psoriasis [Not Recovered/Not Resolved]
  - Eye pain [Not Recovered/Not Resolved]
  - Headache [Not Recovered/Not Resolved]
  - Hyperaesthesia [Not Recovered/Not Resolved]
  - Epistaxis [Not Recovered/Not Resolved]
  - Poor quality sleep [Not Recovered/Not Resolved]
  - Dyspnoea [Not Recovered/Not Resolved]
  - Rhinorrhoea [Not Recovered/Not Resolved]
  - Sinusitis [Not Recovered/Not Resolved]
  - Drug effect incomplete [Not Recovered/Not Resolved]
